FAERS Safety Report 8982618 (Version 4)
Quarter: 2013Q3

REPORT INFORMATION
  Report Type: Report from Study
  Country: US (occurrence: US)
  Receive Date: 20121221
  Receipt Date: 20130821
  Transmission Date: 20140515
  Serious: Yes (Hospitalization, Other)
  Sender: FDA-Public Use
  Company Number: US-ABBOTT-12P-163-1022404-00

PATIENT
  Age: 31 Year
  Sex: Female
  Weight: 77.63 kg

DRUGS (17)
  1. HUMIRA [Suspect]
     Indication: CROHN^S DISEASE
     Dates: start: 2010, end: 20120521
  2. HUMIRA [Suspect]
     Dates: start: 20120604
  3. VICODIN [Suspect]
     Indication: PRODUCT USED FOR UNKNOWN INDICATION
  4. GABAPENTIN [Concomitant]
     Indication: PRODUCT USED FOR UNKNOWN INDICATION
  5. LEXAPRO [Concomitant]
     Indication: DEPRESSION
     Dosage: 10 MG DAILY
  6. AMITRIPTYLINE [Concomitant]
     Indication: INSOMNIA
     Dosage: AT BEDTIME
  7. 6-MP [Concomitant]
     Indication: PRODUCT USED FOR UNKNOWN INDICATION
     Dosage: 50 MG DAILY
  8. ROBINUL [Concomitant]
     Indication: IMPAIRED GASTRIC EMPTYING
  9. ROBINUL [Concomitant]
     Indication: GASTROOESOPHAGEAL REFLUX DISEASE
  10. PROPRANOLOL [Concomitant]
     Indication: HYPERTENSION
  11. ROBAXIN [Concomitant]
     Indication: MUSCLE RELAXANT THERAPY
     Dosage: 4 TIMES A DAY AS NEEDED
  12. ROBAXIN [Concomitant]
     Indication: NECK PAIN
  13. ROBAXIN [Concomitant]
     Indication: MUSCULOSKELETAL PAIN
  14. CHOLESTYRAMINE [Concomitant]
     Indication: GASTROINTESTINAL DISORDER
     Dosage: IN 8 OUNCES WATER
  15. MAGNESIUM OXIDE [Concomitant]
     Indication: MINERAL SUPPLEMENTATION
  16. IMITREX [Concomitant]
     Indication: MIGRAINE
     Dosage: UP TO 2 DOSES AS NEEDED
  17. FOLIC ACID [Concomitant]
     Indication: VITAMIN SUPPLEMENTATION
     Dosage: 1 MG DAILY

REACTIONS (9)
  - Fall [Not Recovered/Not Resolved]
  - Joint injury [Not Recovered/Not Resolved]
  - Impaired gastric emptying [Unknown]
  - Ear infection [Unknown]
  - Dry skin [Unknown]
  - Skin exfoliation [Unknown]
  - Abdominal pain [Unknown]
  - Insomnia [Unknown]
  - Cerumen impaction [Unknown]
